FAERS Safety Report 20091440 (Version 1)
Quarter: 2021Q4

REPORT INFORMATION
  Report Type: Other
  Country: IT (occurrence: None)
  Receive Date: 20211119
  Receipt Date: 20211119
  Transmission Date: 20220303
  Serious: Yes (Other)
  Sender: FDA-Public Use
  Company Number: IT-Merck Healthcare KGaA-9280221

PATIENT
  Age: 30 Year
  Sex: Female

DRUGS (2)
  1. CLADRIBINE [Suspect]
     Active Substance: CLADRIBINE
     Indication: Multiple sclerosis
     Dates: start: 2020
  2. TOZINAMERAN [Suspect]
     Active Substance: TOZINAMERAN
     Indication: COVID-19 immunisation
     Dosage: COVID BOOSTER
     Dates: start: 20210408

REACTIONS (2)
  - Multiple sclerosis [Unknown]
  - Brain oedema [Unknown]

NARRATIVE: CASE EVENT DATE: 20210603
